FAERS Safety Report 8848606 (Version 4)
Quarter: 2013Q1

REPORT INFORMATION
  Report Type: Spontaneous
  Country: JP (occurrence: JP)
  Receive Date: 20121019
  Receipt Date: 20130307
  Transmission Date: 20140127
  Serious: Yes (Death, Other)
  Sender: FDA-Public Use
  Company Number: JP-BRISTOL-MYERS SQUIBB COMPANY-17029927

PATIENT
  Age: 76 Year
  Sex: Female
  Weight: 51 kg

DRUGS (11)
  1. ORENCIA FOR INJ 250 MG/VIAL [Suspect]
     Indication: RHEUMATOID ARTHRITIS
     Dosage: 24-SEP-2012:5TH DOSE-20AUG12
     Route: 041
     Dates: start: 20120521, end: 20120910
  2. FOSAMAC [Suspect]
     Indication: OSTEOPOROSIS
     Route: 048
     Dates: start: 20071018, end: 20120919
  3. JUVELA N [Suspect]
     Route: 048
     Dates: start: 20120116, end: 20120919
  4. VESICARE [Suspect]
     Indication: POLLAKIURIA
     Route: 048
     Dates: start: 20120116, end: 20120919
  5. VESICARE [Suspect]
     Indication: HYPERTONIC BLADDER
     Route: 048
     Dates: start: 20120116, end: 20120919
  6. AZULFIDINE [Suspect]
     Indication: RHEUMATOID ARTHRITIS
     Route: 048
     Dates: start: 20120213, end: 20120919
  7. ISCOTIN [Suspect]
     Indication: ANTIBIOTIC PROPHYLAXIS
     Route: 048
     Dates: start: 20120507, end: 20120919
  8. PYDOXAL [Suspect]
     Indication: PROPHYLAXIS
     Route: 048
     Dates: start: 20120507, end: 20120919
  9. URSO [Suspect]
     Indication: LIVER DISORDER
     Dosage: 19SEP2012-ONGOING
     Route: 048
     Dates: start: 20120813
  10. METHOTREXATE [Concomitant]
     Route: 048
     Dates: start: 20070618, end: 20120813
  11. PREDNISOLONE [Concomitant]
     Indication: RHEUMATOID ARTHRITIS
     Dosage: TAB
     Route: 048
     Dates: start: 20030613

REACTIONS (2)
  - Death [Fatal]
  - Liver disorder [Unknown]
